FAERS Safety Report 7412603-0 (Version None)
Quarter: 2011Q2

REPORT INFORMATION
  Report Type: 
  Country: None (occurrence: None)
  Receive Date: 20110404
  Receipt Date: 20110201
  Transmission Date: 20111010
  Serious: Yes (Hospitalization)
  Sender: FDA-Public Use
  Company Number: ES-001626

PATIENT
  Sex: Female
  Weight: 50 kg

DRUGS (3)
  1. KUVAN [Suspect]
     Indication: PHENYLKETONURIA
     Dosage: (400 MG QD ORAL)
     Route: 048
     Dates: start: 20090922
  2. NUTRIENTS WITHOUT PHENYLALANINE [Concomitant]
  3. METHYLPHENIDATE HCL [Concomitant]

REACTIONS (2)
  - NEPHROLITHIASIS [None]
  - WEIGHT DECREASED [None]
